FAERS Safety Report 8202309-2 (Version None)
Quarter: 2012Q1

REPORT INFORMATION
  Report Type: 
  Country: None (occurrence: None)
  Receive Date: 20120312
  Receipt Date: 20120306
  Transmission Date: 20120608
  Serious: Yes (Death, Other)
  Sender: FDA-Public Use
  Company Number: PHHY2012TH019377

PATIENT
  Sex: Male

DRUGS (1)
  1. TASIGNA [Suspect]
     Indication: CHRONIC MYELOID LEUKAEMIA
     Dosage: 600 MG (400 MG AM, 200 MG PM)
     Route: 048
     Dates: start: 20110420, end: 20120103

REACTIONS (13)
  - SINUS TACHYCARDIA [None]
  - DYSPNOEA [None]
  - HYPERTENSION [None]
  - HYPOMAGNESAEMIA [None]
  - PYREXIA [None]
  - CHEST PAIN [None]
  - SEPSIS [None]
  - HEART RATE INCREASED [None]
  - ALTERED STATE OF CONSCIOUSNESS [None]
  - HYPERGLYCAEMIA [None]
  - TACHYPNOEA [None]
  - CARDIAC ARREST [None]
  - HYPOKALAEMIA [None]
